FAERS Safety Report 9283785 (Version 2)
Quarter: 2013Q4

REPORT INFORMATION
  Report Type: Spontaneous
  Country: US (occurrence: US)
  Receive Date: 20130510
  Receipt Date: 20131223
  Transmission Date: 20140711
  Serious: Yes (Hospitalization)
  Sender: FDA-Public Use
  Company Number: US-BAYER-2013-058013

PATIENT
  Age: 19 Year
  Sex: Female
  Weight: 82 kg

DRUGS (2)
  1. OCELLA [Suspect]
     Dosage: UNK
     Dates: start: 2007, end: 2009
  2. ADVIL [Concomitant]

REACTIONS (11)
  - Pulmonary embolism [None]
  - Abdominal pain [None]
  - Pain [None]
  - Injury [None]
  - General physical health deterioration [None]
  - Anxiety [None]
  - Emotional distress [None]
  - Pain [None]
  - Musculoskeletal pain [None]
  - Dyspnoea [None]
  - Pleuritic pain [None]
